FAERS Safety Report 8473938-6 (Version None)
Quarter: 2012Q2

REPORT INFORMATION
  Report Type: 
  Country: None (occurrence: None)
  Receive Date: 20120628
  Receipt Date: 20120402
  Transmission Date: 20120825
  Serious: Yes (Death)
  Sender: FDA-Public Use
  Company Number: US-MYLANLABS-2012S1003397

PATIENT
  Age: 76 Year
  Sex: Female
  Weight: 77.57 kg

DRUGS (5)
  1. ABILIFY [Concomitant]
  2. GALANTAMINE HYDROBROMIDE [Concomitant]
  3. SYNTHROID [Concomitant]
  4. CLOZAPINE [Suspect]
     Indication: SCHIZOPHRENIA, PARANOID TYPE
     Route: 048
     Dates: start: 20050101
  5. ARICEPT [Concomitant]

REACTIONS (1)
  - DEATH [None]
